FAERS Safety Report 5869590-6 (Version None)
Quarter: 2008Q3

REPORT INFORMATION
  Report Type: 
  Country: None (occurrence: None)
  Receive Date: 20080904
  Receipt Date: 20071019
  Transmission Date: 20090109
  Serious: No
  Sender: FDA-Public Use
  Company Number: US-KINGPHARMUSA00001-K200701354

PATIENT

DRUGS (4)
  1. CYTOMEL [Suspect]
     Indication: HYPOTHYROIDISM
     Dosage: 5 MCG, QD
     Route: 048
  2. CYTOMEL [Suspect]
     Dosage: 2.5 MCG, QD
     Route: 048
  3. LEVOXYL [Suspect]
     Indication: HYPOTHYROIDISM
     Dosage: 25 MCG, QD
     Route: 048
  4. MINERAL TAB [Suspect]
     Indication: SUPPLEMENTATION THERAPY
     Dosage: UNK, UNK

REACTIONS (2)
  - DRUG INEFFECTIVE [None]
  - OVERDOSE [None]
